FAERS Safety Report 7350159-1 (Version None)
Quarter: 2011Q1

REPORT INFORMATION
  Report Type: 
  Country: None (occurrence: None)
  Receive Date: 20110309
  Receipt Date: 20110309
  Transmission Date: 20110831
  Serious: Yes (Hospitalization)
  Sender: FDA-Public Use
  Company Number: None

PATIENT
  Sex: Male
  Weight: 76.8 kg

DRUGS (6)
  1. VINCRISTINE SULFATE [Suspect]
     Dosage: 2 MG
  2. METHOTREXATE [Suspect]
     Dosage: 15 MG
  3. PEG-L ASPARAGINASE (K-H) [Suspect]
     Dosage: 4875 UNIT
  4. ALLOPURINOL [Suspect]
     Dosage: 300 MG
  5. DAUNORUBICIN [Suspect]
     Dosage: 49 MG
  6. CYTARABINE [Suspect]
     Dosage: 70 MG

REACTIONS (4)
  - CHEST PAIN [None]
  - NUCHAL RIGIDITY [None]
  - FIBRIN D DIMER INCREASED [None]
  - HEADACHE [None]
